FAERS Safety Report 5735525-X (Version None)
Quarter: 2008Q2

REPORT INFORMATION
  Report Type: 
  Country: None (occurrence: None)
  Receive Date: 20080512
  Receipt Date: 20080506
  Transmission Date: 20081010
  Serious: Yes (Hospitalization, Other)
  Sender: FDA-Public Use
  Company Number: DK-PFIZER INC-2007091374

PATIENT
  Sex: Male
  Weight: 140 kg

DRUGS (4)
  1. ZELDOX (CAPSULES) [Suspect]
     Indication: SCHIZOPHRENIA
     Dosage: TEXT:60 TO 80 MG DAILY
     Route: 048
     Dates: start: 20070101, end: 20070913
  2. CITALOPRAM HYDROBROMIDE [Concomitant]
     Route: 048
  3. OXAPAX [Concomitant]
     Route: 048
     Dates: start: 20070716
  4. TRUXAL [Concomitant]
     Route: 048
     Dates: start: 20070716, end: 20080114

REACTIONS (5)
  - DRUG INEFFECTIVE [None]
  - HALLUCINATION [None]
  - LOWER LIMB FRACTURE [None]
  - PELVIC FRACTURE [None]
  - PSYCHOTIC DISORDER [None]
